FAERS Safety Report 6022791-9 (Version None)
Quarter: 2008Q4

REPORT INFORMATION
  Report Type: 
  Country: None (occurrence: None)
  Receive Date: 20081224
  Receipt Date: 20081224
  Transmission Date: 20090506
  Serious: Yes (Life-Threatening, Disabling)
  Sender: FDA-Public Use
  Company Number: None

PATIENT
  Age: 59 Year
  Sex: Female
  Weight: 72.1219 kg

DRUGS (1)
  1. T-100 100 MG THRYOID DNA LABORATORIES -SEE INTERNET!- [Suspect]
     Dosage: ONE OR TWO CAPSULES DAILY PO
     Route: 048
     Dates: start: 20070302, end: 20081223

REACTIONS (1)
  - HYPERTHYROIDISM [None]
